FAERS Safety Report 11651777 (Version 1)
Quarter: 2015Q4

REPORT INFORMATION
  Report Type: Spontaneous
  Country: GB (occurrence: GB)
  Receive Date: 20151022
  Receipt Date: 20151022
  Transmission Date: 20160304
  Serious: Yes (Other)
  Sender: FDA-Public Use
  Company Number: GB-TEVA-601765ACC

PATIENT
  Age: 59 Year
  Sex: Female

DRUGS (2)
  1. PARACETAMOL [Concomitant]
     Active Substance: ACETAMINOPHEN
  2. AMITRIPTYLINE [Suspect]
     Active Substance: AMITRIPTYLINE
     Indication: PAIN IN EXTREMITY
     Dosage: 5 MG
     Route: 048
     Dates: start: 20151001, end: 20151002

REACTIONS (2)
  - Tinnitus [Recovering/Resolving]
  - Ear discomfort [Recovering/Resolving]

NARRATIVE: CASE EVENT DATE: 20151001
